FAERS Safety Report 4949392-5 (Version None)
Quarter: 2006Q1

REPORT INFORMATION
  Report Type: 
  Country: None (occurrence: None)
  Receive Date: 20060315
  Receipt Date: 20060222
  Transmission Date: 20060701
  Serious: Yes (Hospitalization, Other)
  Sender: FDA-Public Use
  Company Number: US-0509122299

PATIENT
  Age: 53 Year
  Sex: Female
  Weight: 52.2 kg

DRUGS (12)
  1. ZYPREXA [Suspect]
     Indication: DEPRESSION
     Dosage: SEE IMAGE
     Route: 048
     Dates: start: 20040721, end: 20040726
  2. ZYPREXA [Suspect]
     Indication: DEPRESSION
     Dosage: SEE IMAGE
     Route: 048
     Dates: start: 20040727, end: 20041212
  3. ZYPREXA [Suspect]
     Indication: DEPRESSION
     Dosage: SEE IMAGE
     Route: 048
     Dates: start: 20041213, end: 20050411
  4. ZYPREXA [Suspect]
     Indication: DEPRESSION
     Dosage: SEE IMAGE
     Route: 048
     Dates: start: 20050412
  5. CYCLOBENZAPRINE HCL [Concomitant]
  6. CLONIDINE [Concomitant]
  7. ENALAPRIL MALEATE [Concomitant]
  8. TEMAZEPAM [Concomitant]
  9. ALPRAZOLAM [Concomitant]
  10. AMBIEN [Concomitant]
  11. EFFEXOR [Concomitant]
  12. PHENYTOIN [Concomitant]

REACTIONS (7)
  - CHOLELITHIASIS [None]
  - DIABETES MELLITUS [None]
  - HYDRONEPHROSIS [None]
  - KIDNEY RUPTURE [None]
  - PANCREATITIS ACUTE [None]
  - PERINEPHRIC COLLECTION [None]
  - URINOMA [None]
